FAERS Safety Report 5876246-2 (Version None)
Quarter: 2008Q3

REPORT INFORMATION
  Report Type: 
  Country: None (occurrence: None)
  Receive Date: 20080910
  Receipt Date: 20080904
  Transmission Date: 20090109
  Serious: Yes (Death, Hospitalization)
  Sender: FDA-Public Use
  Company Number: DE-BAXTER-2008BH008862

PATIENT
  Age: 36 Year
  Sex: Female
  Weight: 66 kg

DRUGS (16)
  1. EXTRANEAL [Suspect]
     Indication: PERITONEAL DIALYSIS
     Dosage: DOSE UNIT:UNKNOWN
     Route: 033
     Dates: start: 20020701, end: 20071112
  2. EXTRANEAL [Suspect]
     Indication: IGA NEPHROPATHY
     Dosage: DOSE UNIT:UNKNOWN
     Route: 033
     Dates: start: 20020701, end: 20071112
  3. EXTRANEAL [Suspect]
     Route: 033
     Dates: start: 20071113
  4. EXTRANEAL [Suspect]
     Route: 033
     Dates: start: 20071113
  5. PHYSIOSOL IN PLASTIC CONTAINER [Suspect]
     Indication: PERITONEAL DIALYSIS
     Route: 033
     Dates: start: 20020701, end: 20071112
  6. PHYSIOSOL IN PLASTIC CONTAINER [Suspect]
     Indication: IGA NEPHROPATHY
     Route: 033
     Dates: start: 20020701, end: 20071112
  7. PHYSIOSOL IN PLASTIC CONTAINER [Suspect]
     Route: 033
     Dates: start: 20071113
  8. PHYSIOSOL IN PLASTIC CONTAINER [Suspect]
     Route: 033
     Dates: start: 20071113
  9. CALCIUM ACETATE [Concomitant]
     Dates: start: 20071001
  10. RENAGEL [Concomitant]
     Dates: start: 20071001
  11. OMEPRAZOLE [Concomitant]
     Dates: start: 20071001
  12. ARANESP [Concomitant]
     Route: 058
     Dates: start: 20071001
  13. VENOFER [Concomitant]
     Route: 042
     Dates: start: 20071001
  14. ROCALTROL [Concomitant]
     Dates: start: 20071001
  15. MIMPARA [Concomitant]
     Dates: start: 20071001
  16. DEKRISTOL [Concomitant]
     Dates: start: 20071001

REACTIONS (16)
  - ACUTE RESPIRATORY DISTRESS SYNDROME [None]
  - ANASTOMOTIC COMPLICATION [None]
  - BRONCHOPNEUMONIA [None]
  - CARDIAC ARREST [None]
  - CARDIAC FAILURE [None]
  - DEATH [None]
  - FUNGAL PERITONITIS [None]
  - HEPATIC FAILURE [None]
  - HEPATORENAL SYNDROME [None]
  - ILEUS [None]
  - LUNG DISORDER [None]
  - PNEUMOTHORAX SPONTANEOUS TENSION [None]
  - POSTOPERATIVE ABSCESS [None]
  - PULMONARY EMBOLISM [None]
  - SCLEROSING ENCAPSULATING PERITONITIS [None]
  - SEPSIS [None]
